FAERS Safety Report 16348700 (Version 1)
Quarter: 2019Q2

REPORT INFORMATION
  Report Type: Spontaneous
  Country: TR (occurrence: TR)
  Receive Date: 20190523
  Receipt Date: 20190523
  Transmission Date: 20190711
  Serious: Yes (Other)
  Sender: FDA-Public Use
  Company Number: TR-AMGEN-TURSP2019078776

PATIENT
  Sex: Male

DRUGS (1)
  1. AMGEVITA [Suspect]
     Active Substance: ADALIMUMAB
     Indication: ANKYLOSING SPONDYLITIS
     Dosage: UNK
     Route: 065
     Dates: start: 20190314

REACTIONS (10)
  - Weight decreased [Unknown]
  - Night sweats [Unknown]
  - Fatigue [Unknown]
  - Irritability [Unknown]
  - Asthenia [Unknown]
  - Insomnia [Unknown]
  - Glaucoma [Unknown]
  - Pyrexia [Unknown]
  - Decreased appetite [Unknown]
  - Dysuria [Unknown]
